FAERS Safety Report 22123717 (Version 1)
Quarter: 2023Q1

REPORT INFORMATION
  Report Type: Spontaneous
  Country: GB (occurrence: GB)
  Receive Date: 20230322
  Receipt Date: 20230322
  Transmission Date: 20230418
  Serious: Yes (Other)
  Sender: FDA-Public Use
  Company Number: GB-ABBVIE-4339400

PATIENT

DRUGS (3)
  1. RASBURICASE [Suspect]
     Active Substance: RASBURICASE
     Indication: Product used for unknown indication
     Dosage: UNK
     Route: 065
  2. VENETOCLAX [Suspect]
     Active Substance: VENETOCLAX
     Indication: Chronic lymphocytic leukaemia
     Dosage: 20 MG
     Route: 065
  3. VENETOCLAX [Suspect]
     Active Substance: VENETOCLAX
     Dosage: 50 MG

REACTIONS (3)
  - Cardiac failure [Unknown]
  - Peripheral swelling [Unknown]
  - Rash maculo-papular [Unknown]
